FAERS Safety Report 15168536 (Version 3)
Quarter: 2019Q1

REPORT INFORMATION
  Report Type: Report from Study
  Country: US (occurrence: US)
  Receive Date: 20180719
  Receipt Date: 20190221
  Transmission Date: 20190417
  Serious: No
  Sender: FDA-Public Use
  Company Number: US-AMGEN-USASL2018096714

PATIENT
  Age: 60 Year
  Sex: Female

DRUGS (1)
  1. ENBREL [Suspect]
     Active Substance: ETANERCEPT
     Indication: RHEUMATOID ARTHRITIS
     Dosage: 50 MG, QWK
     Route: 065

REACTIONS (6)
  - Diarrhoea [Unknown]
  - Injection site swelling [Unknown]
  - Vomiting [Unknown]
  - Injection site erythema [Unknown]
  - Sinusitis [Unknown]
  - Tooth infection [Unknown]

NARRATIVE: CASE EVENT DATE: 201806
